FAERS Safety Report 25196371 (Version 1)
Quarter: 2025Q2

REPORT INFORMATION
  Report Type: Spontaneous
  Country: RO (occurrence: RO)
  Receive Date: 20250415
  Receipt Date: 20250415
  Transmission Date: 20250717
  Serious: Yes (Other)
  Sender: MERCK SHARP & DOHME LLC
  Company Number: RO-009507513-2274712

PATIENT
  Age: 48 Year
  Sex: Male

DRUGS (1)
  1. DORAVIRINE\LAMIVUDINE\TENOFOVIR DISOPROXIL FUMARATE [Suspect]
     Active Substance: DORAVIRINE\LAMIVUDINE\TENOFOVIR DISOPROXIL FUMARATE
     Indication: HIV infection WHO clinical stage III
     Route: 048
     Dates: start: 20230306

REACTIONS (6)
  - Acute kidney injury [Unknown]
  - Hepatosplenomegaly [Unknown]
  - Ascites [Unknown]
  - Hepatic cytolysis [Unknown]
  - Thrombocytopenia [Unknown]
  - Electrolyte imbalance [Unknown]

NARRATIVE: CASE EVENT DATE: 20250101
